FAERS Safety Report 5727249-X (Version None)
Quarter: 2008Q2

REPORT INFORMATION
  Report Type: 
  Country: None (occurrence: None)
  Receive Date: 20080505
  Receipt Date: 20080423
  Transmission Date: 20081010
  Serious: Yes (Hospitalization)
  Sender: FDA-Public Use
  Company Number: JP-BRISTOL-MYERS SQUIBB COMPANY-14141337

PATIENT
  Age: 66 Year
  Sex: Female

DRUGS (11)
  1. SINEMET [Suspect]
     Indication: PARKINSON'S DISEASE
     Dosage: 1DOSAGEFORM = 1TAB.24OCT02-30JUN03;08JUN06-11SEP06;12SEP06-04MAR07(10TAB/D);05MAR07-UNK(8TAB/D)
     Route: 048
     Dates: start: 20060608
  2. SYMMETREL [Suspect]
     Indication: PARKINSON'S DISEASE
     Dosage: TAKEN AS TABS.
     Route: 048
     Dates: start: 20070315
  3. PRAVASTATIN SODIUM [Suspect]
     Indication: HYPERLIPIDAEMIA
     Route: 048
     Dates: start: 20070305
  4. DROXIDOPA [Suspect]
     Indication: PARKINSON'S DISEASE
     Dosage: DOSEFORM=TAB.24OCT02-20JUN03;8JUN06-4MAR07;5MAR07-2APR08;3APR08-5APR08;6APR08-CON.INCREASED TO600MG
     Route: 048
     Dates: start: 20060608
  5. CINAL S [Suspect]
     Indication: PARKINSON'S DISEASE
     Dosage: STARTED 2-3 YEARS AGO. GRANULES.
     Route: 048
     Dates: start: 20070305
  6. PRAMIPEXOLE DIHYDROCHLORIDE [Suspect]
     Indication: PARKINSON'S DISEASE
     Dosage: FORMULATION: TABLET. 01AUG06-17APR07(1MG TID);18APR07-CONT(1.5MG TID)
     Route: 048
     Dates: start: 20060801
  7. GLYSENNID [Suspect]
     Indication: PARKINSON'S DISEASE
     Dosage: STARTED 1-2 YEARS AGO.
     Route: 048
     Dates: start: 20060608
  8. ZONISAMIDE [Suspect]
     Indication: PARKINSON'S DISEASE
     Dosage: TAKEN AS TABS; STARTED 1-2 YEARS AGO.
     Route: 048
     Dates: start: 20070822
  9. REQUIP [Suspect]
     Indication: PARKINSON'S DISEASE
     Dosage: FORMULATION: TABLET
     Route: 048
     Dates: start: 20071219, end: 20080122
  10. BLADDERON [Suspect]
     Indication: NEUROGENIC BLADDER
     Route: 048
     Dates: start: 20060801
  11. GRAN [Suspect]
     Indication: ANXIETY DISORDER
     Route: 048
     Dates: start: 20061114

REACTIONS (2)
  - CHONDROCALCINOSIS PYROPHOSPHATE [None]
  - ERYTHROMELALGIA [None]
